FAERS Safety Report 19865351 (Version 1)
Quarter: 2021Q3

REPORT INFORMATION
  Report Type: Other
  Country: TW (occurrence: TW)
  Receive Date: 20210921
  Receipt Date: 20210921
  Transmission Date: 20211014
  Serious: Yes (Other)
  Sender: FDA-Public Use
  Company Number: TW-ROCHE-2911306

PATIENT
  Age: 93 Year
  Sex: Male
  Weight: 55 kg

DRUGS (2)
  1. TAMIFLU [Suspect]
     Active Substance: OSELTAMIVIR PHOSPHATE
     Indication: INFLUENZA
     Dosage: FOR 5 DAYS
     Route: 048
  2. WARFARIN [Concomitant]
     Active Substance: WARFARIN
     Route: 048
     Dates: start: 2004

REACTIONS (3)
  - International normalised ratio increased [Recovered/Resolved]
  - Hepatic encephalopathy [Unknown]
  - Off label use [Unknown]
